FAERS Safety Report 10253758 (Version 1)
Quarter: 2014Q2

REPORT INFORMATION
  Report Type: Spontaneous
  Country: HR (occurrence: HR)
  Receive Date: 20140623
  Receipt Date: 20140623
  Transmission Date: 20141212
  Serious: Yes (Other)
  Sender: FDA-Public Use
  Company Number: HR-PFIZER INC-2014170075

PATIENT
  Age: 54 Year
  Sex: Female

DRUGS (2)
  1. CONTROLOC [Suspect]
     Indication: GASTROOESOPHAGEAL REFLUX DISEASE
     Dosage: 20 MG, UNK
     Route: 048
     Dates: start: 2012
  2. CONTROLOC [Suspect]
     Dosage: 20 MG, 1X/DAY
     Route: 048
     Dates: start: 201312

REACTIONS (6)
  - Urticaria [Recovered/Resolved]
  - Vomiting [Recovered/Resolved]
  - Lip swelling [Recovered/Resolved]
  - Pruritus [Recovered/Resolved]
  - Pruritus [Recovered/Resolved]
  - Loss of consciousness [Recovered/Resolved]
